FAERS Safety Report 5993844-6 (Version None)
Quarter: 2008Q4

REPORT INFORMATION
  Report Type: 
  Country: None (occurrence: None)
  Receive Date: 20081212
  Receipt Date: 20081028
  Transmission Date: 20090506
  Serious: No
  Sender: FDA-Public Use
  Company Number: US-ABBOTT-08P-163-0433899-00

PATIENT
  Sex: Female
  Weight: 81.266 kg

DRUGS (1)
  1. HUMIRA [Suspect]
     Indication: PSORIATIC ARTHROPATHY
     Route: 058
     Dates: start: 20071101

REACTIONS (3)
  - COLITIS COLLAGENOUS [None]
  - DIARRHOEA [None]
  - HYPOAESTHESIA [None]
